FAERS Safety Report 12805511 (Version 1)
Quarter: 2016Q4

REPORT INFORMATION
  Report Type: Spontaneous
  Country: US (occurrence: US)
  Receive Date: 20161004
  Receipt Date: 20161004
  Transmission Date: 20170207
  Serious: No
  Sender: FDA-Public Use
  Company Number: US-BAYER-2016-190520

PATIENT
  Age: 3 Year
  Sex: Female
  Weight: 22.68 kg

DRUGS (1)
  1. MIRALAX [Suspect]
     Active Substance: POLYETHYLENE GLYCOL 3350
     Indication: GASTROINTESTINAL DISORDER
     Dosage: 0.25 DF, QD (1/4 CAPFUL OF THE PRODUCT IN LESS THAN 4OZ OF WATER ONCE A DAY, EVERY DAY)
     Route: 048
     Dates: start: 201309, end: 20160927

REACTIONS (3)
  - Product contamination physical [None]
  - Product use issue [None]
  - Poor quality drug administered [None]

NARRATIVE: CASE EVENT DATE: 201309
